FAERS Safety Report 17909480 (Version 2)
Quarter: 2020Q2

REPORT INFORMATION
  Report Type: Report from Study
  Country: ES (occurrence: ES)
  Receive Date: 20200617
  Receipt Date: 20200629
  Transmission Date: 20200714
  Serious: Yes (Other)
  Sender: FDA-Public Use
  Company Number: ES-JNJFOC-20200609995

PATIENT

DRUGS (1)
  1. REMICADE [Suspect]
     Active Substance: INFLIXIMAB
     Indication: ULCERATIVE KERATITIS
     Route: 042

REACTIONS (3)
  - Pulmonary tuberculosis [Unknown]
  - Off label use [Unknown]
  - Product use in unapproved indication [Unknown]
